FAERS Safety Report 6135974-4 (Version None)
Quarter: 2009Q1

REPORT INFORMATION
  Report Type: 
  Country: None (occurrence: None)
  Receive Date: 20090329
  Receipt Date: 20080808
  Transmission Date: 20090719
  Serious: No
  Sender: FDA-Public Use
  Company Number: US-BAUSCH-2008BL003480

PATIENT
  Age: 49 Year
  Sex: Male
  Weight: 58 kg

DRUGS (5)
  1. LOTEMAX [Suspect]
     Indication: CONJUNCTIVITIS VIRAL
     Route: 047
     Dates: start: 20080807
  2. LOTEMAX [Suspect]
     Indication: OFF LABEL USE
     Route: 047
     Dates: start: 20080807
  3. SUMATRIPTAN [Concomitant]
     Indication: HEADACHE
     Route: 045
  4. BENADRYL ^PFIZER WARNER-LAMBERT^ [Concomitant]
     Indication: SINUS DISORDER
     Route: 048
  5. ASPIRIN [Concomitant]
     Indication: PAIN
     Route: 048

REACTIONS (4)
  - DYSGEUSIA [None]
  - INSOMNIA [None]
  - MANIA [None]
  - SENSORY DISTURBANCE [None]
